FAERS Safety Report 21712397 (Version 1)
Quarter: 2022Q4

REPORT INFORMATION
  Report Type: Spontaneous
  Country: US (occurrence: None)
  Receive Date: 20221209
  Receipt Date: 20221209
  Transmission Date: 20230112
  Serious: No
  Sender: FDA-Public Use
  Company Number: None

PATIENT
  Age: 42 Year
  Sex: Female
  Weight: 58.5 kg

DRUGS (5)
  1. INVEGA [Suspect]
     Active Substance: PALIPERIDONE
  2. Wellbutrin 150mg one daily [Concomitant]
  3. Invega interacts w Wellbutrin [Concomitant]
  4. Invega eliminated Wellbutrin effect of reducing smoking urge [Concomitant]
  5. Daughter smokes less after she stopped Invega 1.5m [Concomitant]

REACTIONS (2)
  - Increased appetite [None]
  - Snoring [None]

NARRATIVE: CASE EVENT DATE: 20221020
